FAERS Safety Report 24138842 (Version 2)
Quarter: 2024Q3

REPORT INFORMATION
  Report Type: Report from Study
  Country: US (occurrence: US)
  Receive Date: 20240725
  Receipt Date: 20240816
  Transmission Date: 20241017
  Serious: No
  Sender: ACADIA PHARMACEUTICALS
  Company Number: US-ACADIA PHARMACEUTICALS INC.-ACA-2024-PIM-003136

PATIENT
  Sex: Female

DRUGS (1)
  1. NUPLAZID [Suspect]
     Active Substance: PIMAVANSERIN TARTRATE
     Indication: Parkinson^s disease psychosis
     Dosage: 34 MILLIGRAM, QD
     Route: 048

REACTIONS (9)
  - Malaise [Recovered/Resolved]
  - Vomiting [Unknown]
  - Blood pressure fluctuation [Unknown]
  - Joint swelling [Not Recovered/Not Resolved]
  - Dizziness [Unknown]
  - Balance disorder [Unknown]
  - Pharyngeal swelling [Unknown]
  - Gait disturbance [Unknown]
  - Dyspnoea [Unknown]
